FAERS Safety Report 7194315-4 (Version None)
Quarter: 2010Q4

REPORT INFORMATION
  Report Type: 
  Country: None (occurrence: None)
  Receive Date: 20101223
  Receipt Date: 20100712
  Transmission Date: 20110411
  Serious: Yes (Hospitalization)
  Sender: FDA-Public Use
  Company Number: US-BAYER-201016081NA

PATIENT
  Sex: Female

DRUGS (2)
  1. YAZ [Suspect]
     Indication: PREMENSTRUAL SYNDROME
     Route: 048
  2. YASMIN [Suspect]
     Indication: PREMENSTRUAL SYNDROME
     Route: 048

REACTIONS (1)
  - PULMONARY EMBOLISM [None]
